FAERS Safety Report 7525492-0 (Version None)
Quarter: 2011Q2

REPORT INFORMATION
  Report Type: 
  Country: None (occurrence: None)
  Receive Date: 20110602
  Receipt Date: 20110602
  Transmission Date: 20111010
  Serious: Yes (Hospitalization, Disabling, Other)
  Sender: FDA-Public Use
  Company Number: None

PATIENT
  Sex: Female
  Weight: 55.3388 kg

DRUGS (1)
  1. FLUTICASONE PROPIONATE [Suspect]
     Indication: SINUSITIS
     Dosage: 2 SPRAYS EA. NOSTRIL DAILY
     Route: 045
     Dates: start: 20101207, end: 20110201

REACTIONS (9)
  - VOMITING [None]
  - INSOMNIA [None]
  - ECONOMIC PROBLEM [None]
  - FEELING ABNORMAL [None]
  - ABDOMINAL PAIN UPPER [None]
  - GASTROINTESTINAL CANDIDIASIS [None]
  - DECREASED APPETITE [None]
  - NAUSEA [None]
  - PAIN [None]
